FAERS Safety Report 20533867 (Version 1)
Quarter: 2022Q1

REPORT INFORMATION
  Report Type: Spontaneous
  Country: JP (occurrence: JP)
  Receive Date: 20220301
  Receipt Date: 20220301
  Transmission Date: 20220423
  Serious: Yes (Death, Other)
  Sender: FDA-Public Use
  Company Number: JP-ONO-2021JP030632

PATIENT
  Age: 72 Year
  Sex: Male
  Weight: 47 kg

DRUGS (10)
  1. FOSAPREPITANT DIMEGLUMINE [Suspect]
     Active Substance: FOSAPREPITANT DIMEGLUMINE
     Indication: Prophylaxis of nausea and vomiting
     Dosage: 150 MG, EVERYDAY
     Route: 041
     Dates: start: 20211125, end: 20211125
  2. OPDIVO [Suspect]
     Active Substance: NIVOLUMAB
     Indication: Non-small cell lung cancer recurrent
     Dosage: 360 MG
     Route: 041
     Dates: start: 20211125, end: 20211125
  3. YERVOY [Suspect]
     Active Substance: IPILIMUMAB
     Indication: Non-small cell lung cancer recurrent
     Dosage: 45 MG
     Route: 041
     Dates: start: 20211125, end: 20211125
  4. PACLITAXEL [Suspect]
     Active Substance: PACLITAXEL
     Indication: Non-small cell lung cancer recurrent
     Dosage: UNK
     Route: 065
     Dates: start: 20211125, end: 20211125
  5. ISOTONIC SODIUM CHLORIDE SOLUTION [Concomitant]
     Active Substance: SODIUM CHLORIDE
     Indication: Prophylaxis
     Dosage: 100 MILLILITER, Q12H
     Route: 042
     Dates: start: 20211125, end: 20211125
  6. ISOTONIC SODIUM CHLORIDE SOLUTION [Concomitant]
     Active Substance: SODIUM CHLORIDE
     Dosage: 50 MILLILITER, EVERYDAY
     Route: 042
     Dates: start: 20211125, end: 20211125
  7. ALOXI [Concomitant]
     Active Substance: PALONOSETRON HYDROCHLORIDE
     Indication: Prophylaxis
     Dosage: 0.75 MG, EVERYDAY
     Route: 042
     Dates: start: 20211125, end: 20211125
  8. DEXAMETHASONE SODIUM PHOSPHATE [Concomitant]
     Active Substance: DEXAMETHASONE SODIUM PHOSPHATE
     Indication: Prophylaxis
     Dosage: 6.6 MG, EVERYDAY
     Route: 042
     Dates: start: 20211125, end: 20211125
  9. POLARAMINE [Concomitant]
     Active Substance: DEXCHLORPHENIRAMINE MALEATE
     Indication: Prophylaxis
     Dosage: 0.5 %, EVERYDAY
     Route: 042
     Dates: start: 20211125, end: 20211125
  10. FAMOTIDINE [Concomitant]
     Active Substance: FAMOTIDINE
     Indication: Prophylaxis
     Dosage: 20 MG, EVERYDAY
     Route: 042
     Dates: start: 20211125, end: 20211125

REACTIONS (2)
  - Death [Fatal]
  - Hypoxia [Unknown]

NARRATIVE: CASE EVENT DATE: 20211125
